FAERS Safety Report 4972988-1 (Version None)
Quarter: 2006Q2

REPORT INFORMATION
  Report Type: 
  Country: None (occurrence: None)
  Receive Date: 20060414
  Receipt Date: 20060411
  Transmission Date: 20061013
  Serious: Yes (Hospitalization)
  Sender: FDA-Public Use
  Company Number: 2006MP000240

PATIENT
  Age: 54 Year
  Sex: Female

DRUGS (7)
  1. ZANTAC [Suspect]
     Indication: CHEMOTHERAPY
     Dosage: 50MG SEE DOSAGE TEXT
     Route: 042
     Dates: start: 20060214, end: 20060404
  2. ONDANSETRON [Suspect]
     Indication: DRUG USE FOR UNKNOWN INDICATION
     Route: 065
  3. APREPITANT [Concomitant]
     Route: 048
     Dates: start: 20060214
  4. DIPHENHYDRAMINE [Concomitant]
     Route: 042
  5. ALOXI [Concomitant]
     Route: 042
  6. DECADRON [Concomitant]
  7. IV SALINE [Concomitant]

REACTIONS (16)
  - ABDOMINAL PAIN [None]
  - ANXIETY [None]
  - BACK PAIN [None]
  - BLOOD ELECTROLYTES ABNORMAL [None]
  - BLOOD PRESSURE DECREASED [None]
  - BLOOD PRESSURE IMMEASURABLE [None]
  - CHEST DISCOMFORT [None]
  - CHEST PAIN [None]
  - DIARRHOEA [None]
  - DYSPNOEA [None]
  - DYSTONIA [None]
  - FEELING HOT [None]
  - HYPERHIDROSIS [None]
  - LOSS OF CONSCIOUSNESS [None]
  - OXYGEN SATURATION DECREASED [None]
  - PULSE PRESSURE DECREASED [None]
